FAERS Safety Report 7808416-8 (Version None)
Quarter: 2011Q4

REPORT INFORMATION
  Report Type: 
  Country: None (occurrence: None)
  Receive Date: 20111012
  Receipt Date: 20110929
  Transmission Date: 20120403
  Serious: Yes (Life-Threatening, Hospitalization)
  Sender: FDA-Public Use
  Company Number: US-JNJFOC-20110903026

PATIENT
  Sex: Male
  Weight: 46.27 kg

DRUGS (3)
  1. TYLENOL-500 [Suspect]
     Indication: PYREXIA
     Route: 065
     Dates: start: 20100101
  2. TYLENOL-500 [Suspect]
     Indication: COUGH
     Route: 065
     Dates: start: 20100101
  3. KEFLEX [Suspect]
     Indication: PHARYNGITIS
     Route: 065
     Dates: start: 20100115, end: 20100101

REACTIONS (3)
  - PRODUCT QUALITY ISSUE [None]
  - STEVENS-JOHNSON SYNDROME [None]
  - DRUG INEFFECTIVE [None]
